FAERS Safety Report 13727336 (Version 2)
Quarter: 2017Q3

REPORT INFORMATION
  Report Type: Spontaneous
  Country: FR (occurrence: FR)
  Receive Date: 20170707
  Receipt Date: 20170901
  Transmission Date: 20171127
  Serious: Yes (Other)
  Sender: FDA-Public Use
  Company Number: FR-BAYER-2017-128696

PATIENT
  Age: 40 Year
  Sex: Female

DRUGS (1)
  1. MIRENA [Suspect]
     Active Substance: LEVONORGESTREL
     Indication: CONTRACEPTION
     Dosage: 20 MCG/24HR, CONT
     Route: 015
     Dates: start: 20150226, end: 20170620

REACTIONS (14)
  - Asthenia [Recovering/Resolving]
  - Tachycardia [Recovered/Resolved]
  - Abdominal pain [Recovered/Resolved]
  - Irritability [Recovered/Resolved]
  - Vertigo [Recovered/Resolved]
  - Insomnia [Recovering/Resolving]
  - Alopecia [Not Recovered/Not Resolved]
  - Breast pain [Recovered/Resolved]
  - Abdominal distension [Recovered/Resolved]
  - Migraine [Not Recovered/Not Resolved]
  - Weight increased [Recovered/Resolved]
  - Genital haemorrhage [Not Recovered/Not Resolved]
  - Amnesia [Recovered/Resolved]
  - Acne [Not Recovered/Not Resolved]

NARRATIVE: CASE EVENT DATE: 201508
